FAERS Safety Report 6476661-2 (Version None)
Quarter: 2009Q4

REPORT INFORMATION
  Report Type: 
  Country: None (occurrence: None)
  Receive Date: 20091207
  Receipt Date: 20091130
  Transmission Date: 20100525
  Serious: Yes (Hospitalization)
  Sender: FDA-Public Use
  Company Number: JP-SANOFI-AVENTIS-2009SA003971

PATIENT
  Age: 51 Year
  Sex: Male
  Weight: 80.6 kg

DRUGS (7)
  1. AMARYL [Suspect]
     Indication: TYPE 2 DIABETES MELLITUS
     Dosage: CCT 1MG/MORNING, 1 MG/EVENING
     Route: 048
     Dates: start: 20080904, end: 20090930
  2. SYR-322 [Suspect]
     Indication: TYPE 2 DIABETES MELLITUS
     Dosage: CCT 1 TABLET
     Dates: start: 20081128, end: 20090930
  3. ADALAT [Concomitant]
     Indication: HYPERTENSION
     Route: 048
     Dates: start: 20070628
  4. MICARDIS [Concomitant]
     Indication: HYPERTENSION
     Route: 048
     Dates: start: 20070628
  5. LIPIDIL [Concomitant]
     Indication: HYPERLIPIDAEMIA
     Route: 048
     Dates: start: 20070628
  6. ALL OTHER THERAPEUTIC PRODUCTS [Concomitant]
     Indication: HYPERLIPIDAEMIA
     Route: 048
     Dates: start: 20080221
  7. XALATAN [Concomitant]
     Indication: OCULAR HYPERTENSION
     Route: 031
     Dates: start: 20030924

REACTIONS (1)
  - ANGINA PECTORIS [None]
